FAERS Safety Report 9413733 (Version 1)
Quarter: 2013Q3

REPORT INFORMATION
  Report Type: Spontaneous
  Country: US (occurrence: US)
  Receive Date: 20130722
  Receipt Date: 20130722
  Transmission Date: 20140515
  Serious: Yes (Other)
  Sender: FDA-Public Use
  Company Number: US-JNJFOC-20130707037

PATIENT
  Age: 21 Year
  Sex: Male
  Weight: 88.45 kg

DRUGS (2)
  1. ROGAINE EXTRA STRENGTH MEN^S 5% UNSCENTED [Suspect]
     Route: 061
  2. ROGAINE EXTRA STRENGTH MEN^S 5% UNSCENTED [Suspect]
     Indication: ALOPECIA
     Dosage: AS DIRECTED
     Route: 061

REACTIONS (6)
  - Depression [Unknown]
  - Weight decreased [Not Recovered/Not Resolved]
  - Alopecia [Not Recovered/Not Resolved]
  - Pruritus [Not Recovered/Not Resolved]
  - Headache [Not Recovered/Not Resolved]
  - Skin irritation [Unknown]
